FAERS Safety Report 12328372 (Version 5)
Quarter: 2017Q3

REPORT INFORMATION
  Report Type: Spontaneous
  Country: US (occurrence: US)
  Receive Date: 20160503
  Receipt Date: 20170910
  Transmission Date: 20171127
  Serious: Yes (Hospitalization, Disabling, Other)
  Sender: FDA-Public Use
  Company Number: US-009507513-1605USA001360

PATIENT
  Sex: Male
  Weight: 120.64 kg

DRUGS (6)
  1. LAMICTAL [Concomitant]
     Active Substance: LAMOTRIGINE
     Indication: BIPOLAR DISORDER
     Dosage: 100 MG, BID
     Route: 048
     Dates: start: 2004
  2. FINASTERIDE. [Suspect]
     Active Substance: FINASTERIDE
     Indication: PROSTATOMEGALY
     Dosage: 1 MG, UNK
     Route: 048
     Dates: start: 199909
  3. TAMSULOSIN HYDROCHLORIDE. [Suspect]
     Active Substance: TAMSULOSIN HYDROCHLORIDE
     Indication: BENIGN PROSTATIC HYPERPLASIA
     Dosage: UNK
     Route: 065
     Dates: start: 2006, end: 2014
  4. FINASTERIDE. [Suspect]
     Active Substance: FINASTERIDE
     Indication: BENIGN PROSTATIC HYPERPLASIA
     Dosage: 5 MG, QD
     Route: 048
     Dates: start: 2006, end: 201405
  5. FINASTERIDE. [Suspect]
     Active Substance: FINASTERIDE
     Indication: URINARY RETENTION
  6. TAMSULOSIN HYDROCHLORIDE. [Suspect]
     Active Substance: TAMSULOSIN HYDROCHLORIDE
     Indication: URINARY RETENTION

REACTIONS (44)
  - Sexual dysfunction [Not Recovered/Not Resolved]
  - Organic erectile dysfunction [Not Recovered/Not Resolved]
  - Depression [Not Recovered/Not Resolved]
  - Asthenia [Unknown]
  - Amnesia [Not Recovered/Not Resolved]
  - Anger [Not Recovered/Not Resolved]
  - Decreased interest [Not Recovered/Not Resolved]
  - Prostatic specific antigen increased [Not Recovered/Not Resolved]
  - Biopsy prostate [Unknown]
  - Hypertension [Unknown]
  - Dry skin [Unknown]
  - Sperm concentration decreased [Not Recovered/Not Resolved]
  - Feeling abnormal [Not Recovered/Not Resolved]
  - Feelings of worthlessness [Not Recovered/Not Resolved]
  - Facial paralysis [Unknown]
  - Pyrexia [Unknown]
  - Urinary retention [Unknown]
  - Androgens abnormal [Unknown]
  - Panic attack [Not Recovered/Not Resolved]
  - Gastrointestinal disorder [Unknown]
  - Sleep apnoea syndrome [Unknown]
  - Large intestine polyp [Unknown]
  - Disturbance in attention [Not Recovered/Not Resolved]
  - Secondary hypogonadism [Not Recovered/Not Resolved]
  - Bronchitis chronic [Unknown]
  - Genital atrophy [Not Recovered/Not Resolved]
  - Testicular atrophy [Not Recovered/Not Resolved]
  - Weight increased [Not Recovered/Not Resolved]
  - Listless [Not Recovered/Not Resolved]
  - Dizziness [Recovered/Resolved]
  - Muscle atrophy [Not Recovered/Not Resolved]
  - Blood glucose increased [Unknown]
  - Alopecia [Unknown]
  - Anxiety [Not Recovered/Not Resolved]
  - Lethargy [Not Recovered/Not Resolved]
  - Vertigo [Unknown]
  - Gynaecomastia [Unknown]
  - Adverse event [Not Recovered/Not Resolved]
  - Irritability [Unknown]
  - Asthenia [Unknown]
  - Gastrointestinal disorder [Unknown]
  - Loss of libido [Not Recovered/Not Resolved]
  - Adverse drug reaction [Recovered/Resolved]
  - Sleep disorder [Not Recovered/Not Resolved]

NARRATIVE: CASE EVENT DATE: 2006
